FAERS Safety Report 21610774 (Version 3)
Quarter: 2022Q4

REPORT INFORMATION
  Report Type: Report from Study
  Country: DE (occurrence: None)
  Receive Date: 20221117
  Receipt Date: 20221213
  Transmission Date: 20230112
  Serious: Yes (Death, Hospitalization)
  Sender: FDA-Public Use
  Company Number: DE-ROCHE-3218231

PATIENT
  Age: 65 Year
  Sex: Male
  Weight: 50 kg

DRUGS (7)
  1. ATEZOLIZUMAB [Suspect]
     Active Substance: ATEZOLIZUMAB
     Indication: Pancreatic carcinoma metastatic
     Dosage: ON 03/NOV/2022, HE RECEIVED MOST RECENT DOSE OF ATEZOLIZUMAB. ON 20/OCT/2022, HE RECEIVED MOST RECEN
     Route: 041
     Dates: start: 20220429
  2. PELAREOREP [Suspect]
     Active Substance: PELAREOREP
     Indication: Pancreatic carcinoma metastatic
     Dosage: 4,5X10^10 TCID50.?ON 20/OCT/2022, HE RECEIVED MOST RECENT DOSE OF PELAREOREP PRIOR TO ONSET OF ADVER
     Route: 042
     Dates: start: 20220427
  3. GEMCITABINE [Suspect]
     Active Substance: GEMCITABINE
     Indication: Pancreatic carcinoma metastatic
     Dosage: ON 06/JUL/2022, HE RECEIVED LAST DOSE OF GEMCITABINE PRIOR TO ADVERSE EVENT.
     Route: 042
     Dates: start: 20220427
  4. PACLITAXEL [Suspect]
     Active Substance: PACLITAXEL
     Indication: Pancreatic carcinoma metastatic
     Dosage: ON 06/JUL/2022, LAST DOSE OF NAB-PACLITAXEL WAS ADMINISTERED PRIOR TO ADVERSE EVENT.
     Route: 042
     Dates: start: 20220427
  5. METAMIZOLE [Concomitant]
     Active Substance: METAMIZOLE
     Dosage: 160 GGT
     Dates: start: 20220718
  6. METOPROLOL [Concomitant]
     Active Substance: METOPROLOL
     Dates: start: 2016
  7. GABAPENTIN [Concomitant]
     Active Substance: GABAPENTIN
     Dates: start: 20220930

REACTIONS (1)
  - Vomiting [Fatal]

NARRATIVE: CASE EVENT DATE: 20221029
